FAERS Safety Report 6166016-2 (Version None)
Quarter: 2009Q2

REPORT INFORMATION
  Report Type: 
  Country: None (occurrence: None)
  Receive Date: 20090424
  Receipt Date: 20090420
  Transmission Date: 20091009
  Serious: Yes (Other)
  Sender: FDA-Public Use
  Company Number: GB-SP-2009-01084

PATIENT
  Age: 81 Year
  Sex: Male

DRUGS (2)
  1. IMMUCYST [Suspect]
     Indication: BLADDER CANCER
     Route: 043
     Dates: start: 20080601, end: 20090224
  2. ZOLADEX [Concomitant]
     Indication: PROSTATE CANCER
     Dosage: ONCE PER MONTH
     Route: 065

REACTIONS (3)
  - JOINT STIFFNESS [None]
  - JOINT SWELLING [None]
  - SYNOVITIS [None]
